FAERS Safety Report 22305605 (Version 1)
Quarter: 2023Q2

REPORT INFORMATION
  Report Type: Report from Study
  Country: US (occurrence: US)
  Receive Date: 20230510
  Receipt Date: 20230510
  Transmission Date: 20230722
  Serious: Yes (Other)
  Sender: FDA-Public Use
  Company Number: US-TAKEDA-2022TUS103857

PATIENT
  Sex: Female
  Weight: 68.481 kg

DRUGS (1)
  1. BRIGATINIB [Suspect]
     Active Substance: BRIGATINIB
     Indication: Bronchial carcinoma
     Dosage: 180 MILLIGRAM, QD
     Route: 048
     Dates: start: 20221118

REACTIONS (3)
  - Bronchial carcinoma [Unknown]
  - Bronchitis [Unknown]
  - Blood pressure increased [Unknown]
